FAERS Safety Report 10704873 (Version 1)
Quarter: 2015Q1

REPORT INFORMATION
  Report Type: Spontaneous
  Country: US (occurrence: None)
  Receive Date: 20150109
  Receipt Date: 20150109
  Transmission Date: 20150721
  Serious: Yes (Hospitalization)
  Sender: FDA-Public Use
  Company Number: None

PATIENT
  Age: 60 Year
  Sex: Male
  Weight: 79.4 kg

DRUGS (1)
  1. VELCADE [Suspect]
     Active Substance: BORTEZOMIB
     Dates: end: 20141219

REACTIONS (14)
  - Decreased appetite [None]
  - Feeling cold [None]
  - Blood urea increased [None]
  - Blood sodium decreased [None]
  - Blood creatinine increased [None]
  - Fall [None]
  - Vomiting [None]
  - Hypotension [None]
  - Nausea [None]
  - Hyperhidrosis [None]
  - Back pain [None]
  - Platelet count decreased [None]
  - Chest discomfort [None]
  - Atelectasis [None]

NARRATIVE: CASE EVENT DATE: 20141222
